FAERS Safety Report 8125485-9 (Version None)
Quarter: 2012Q1

REPORT INFORMATION
  Report Type: 
  Country: None (occurrence: None)
  Receive Date: 20120209
  Receipt Date: 20120203
  Transmission Date: 20120608
  Serious: Yes (Other)
  Sender: FDA-Public Use
  Company Number: US-PFIZER INC-2011146497

PATIENT
  Sex: Female

DRUGS (12)
  1. SERAX [Concomitant]
     Indication: SLEEP DISORDER
     Dosage: UNK
     Dates: start: 20040101, end: 20080101
  2. LORTAB [Concomitant]
     Indication: PAIN
     Dosage: UNK
     Dates: start: 20040101
  3. AMOXICILLIN [Concomitant]
     Indication: ANTIBIOTIC THERAPY
     Dosage: UNK
     Dates: start: 20040101, end: 20090101
  4. CHANTIX [Suspect]
     Indication: SMOKING CESSATION THERAPY
     Dosage: STARTER MONTH PAK
     Dates: start: 20070724, end: 20070824
  5. PREMARIN [Concomitant]
     Indication: MENOPAUSE
     Dosage: UNK
     Dates: start: 19950101
  6. GLUCOPHAGE [Concomitant]
     Indication: DIABETES MELLITUS
     Dosage: UNK
  7. KEFLEX [Concomitant]
     Indication: ANTIBIOTIC THERAPY
     Dosage: UNK
     Dates: start: 20040101, end: 20110101
  8. ACETAMINOPHEN [Concomitant]
     Indication: PAIN
  9. TRAMADOL [Concomitant]
     Indication: PAIN
     Dosage: UNK
     Dates: start: 20040101
  10. ACETAMINOPHEN [Concomitant]
     Indication: PYREXIA
     Dosage: UNK
     Dates: start: 20050101, end: 20110101
  11. ATARAX [Concomitant]
     Dosage: UNK
     Dates: start: 20060101, end: 20110101
  12. CHANTIX [Suspect]
     Dosage: 1 MG, CONTINUING MONTH PAK
     Dates: start: 20080101, end: 20080501

REACTIONS (8)
  - LOSS OF CONSCIOUSNESS [None]
  - SUICIDAL IDEATION [None]
  - BIPOLAR DISORDER [None]
  - CONFUSIONAL STATE [None]
  - ROAD TRAFFIC ACCIDENT [None]
  - ANXIETY [None]
  - DEPRESSION [None]
  - AMNESIA [None]
